FAERS Safety Report 19089185 (Version 1)
Quarter: 2021Q2

REPORT INFORMATION
  Report Type: Spontaneous
  Country: CA (occurrence: CA)
  Receive Date: 20210403
  Receipt Date: 20210403
  Transmission Date: 20210717
  Serious: Yes (Other)
  Sender: FDA-Public Use
  Company Number: CA-AUROBINDO-AUR-APL-2021-013556

PATIENT
  Age: 30 Year
  Sex: Male

DRUGS (1)
  1. CYCLOBENZAPRINE TABLETS [Suspect]
     Active Substance: CYCLOBENZAPRINE
     Indication: BACK PAIN
     Dosage: 10 MILLIGRAM, AS REQUIRED
     Route: 048

REACTIONS (2)
  - Loss of consciousness [Unknown]
  - Presyncope [Unknown]
